FAERS Safety Report 8050957-5 (Version None)
Quarter: 2012Q1

REPORT INFORMATION
  Report Type: 
  Country: None (occurrence: None)
  Receive Date: 20120117
  Receipt Date: 20120111
  Transmission Date: 20120608
  Serious: Yes (Other)
  Sender: FDA-Public Use
  Company Number: PHEH2012US001268

PATIENT
  Sex: Female

DRUGS (2)
  1. RECLAST [Suspect]
     Dosage: UNK
     Route: 042
  2. RECLAST [Suspect]
     Dosage: UNK
     Route: 042

REACTIONS (2)
  - FRACTURE [None]
  - RHEUMATOID ARTHRITIS [None]
